FAERS Safety Report 14982432 (Version 3)
Quarter: 2019Q2

REPORT INFORMATION
  Report Type: Spontaneous
  Country: US (occurrence: US)
  Receive Date: 20180607
  Receipt Date: 20190606
  Transmission Date: 20190711
  Serious: No
  Sender: FDA-Public Use
  Company Number: US-PFIZER INC-2018231404

PATIENT
  Age: 43 Year
  Sex: Female

DRUGS (2)
  1. VENLAFAXINE HCL [Suspect]
     Active Substance: VENLAFAXINE HYDROCHLORIDE
     Dosage: UNK
  2. XANAX [Concomitant]
     Active Substance: ALPRAZOLAM
     Indication: ANXIETY
     Dosage: UNK UNK, 2X/DAY [0.5MG IN AM + 1MG IN PM]
     Dates: start: 2006

REACTIONS (9)
  - Nausea [Unknown]
  - Anxiety [Unknown]
  - Tremor [Unknown]
  - Drug ineffective [Unknown]
  - Affect lability [Unknown]
  - Crying [Unknown]
  - Headache [Unknown]
  - Depression [Unknown]
  - Appetite disorder [Unknown]

NARRATIVE: CASE EVENT DATE: 201103
